FAERS Safety Report 16572705 (Version 1)
Quarter: 2019Q3

REPORT INFORMATION
  Report Type: Spontaneous
  Country: US (occurrence: US)
  Receive Date: 20190715
  Receipt Date: 20190715
  Transmission Date: 20191004
  Serious: No
  Sender: FDA-Public Use
  Company Number: US-SA-2019SA188752

PATIENT
  Age: 62 Year
  Sex: Female

DRUGS (1)
  1. DUPIXENT [Suspect]
     Active Substance: DUPILUMAB
     Indication: NEURODERMATITIS
     Dosage: 600 MG, 1X
     Route: 058
     Dates: start: 20190705, end: 20190705

REACTIONS (4)
  - Eczema [Unknown]
  - Eye swelling [Unknown]
  - Swelling of eyelid [Unknown]
  - Rash pruritic [Unknown]

NARRATIVE: CASE EVENT DATE: 201907
